FAERS Safety Report 14958881 (Version 2)
Quarter: 2018Q2

REPORT INFORMATION
  Report Type: Spontaneous
  Country: US (occurrence: US)
  Receive Date: 20180531
  Receipt Date: 20180628
  Transmission Date: 20180711
  Serious: Yes (Hospitalization)
  Sender: FDA-Public Use
  Company Number: US-ENDO PHARMACEUTICALS INC-2018-039537

PATIENT
  Age: 78 Year
  Sex: Male

DRUGS (2)
  1. HYDRALAZINE [Suspect]
     Active Substance: HYDRALAZINE HYDROCHLORIDE
     Dosage: UNK UNKNOWN, UNKNOWN
     Route: 065
  2. HYDRALAZINE [Suspect]
     Active Substance: HYDRALAZINE HYDROCHLORIDE
     Indication: PRODUCT USED FOR UNKNOWN INDICATION
     Dosage: 75 MG, BID
     Route: 065

REACTIONS (2)
  - Anti-neutrophil cytoplasmic antibody positive vasculitis [Recovered/Resolved]
  - Cutaneous vasculitis [Recovered/Resolved]
